FAERS Safety Report 11277497 (Version 3)
Quarter: 2015Q3

REPORT INFORMATION
  Report Type: Report from Study
  Country: IT (occurrence: IT)
  Receive Date: 20150716
  Receipt Date: 20150803
  Transmission Date: 20151125
  Serious: Yes (Hospitalization)
  Sender: FDA-Public Use
  Company Number: IT-EISAI MEDICAL RESEARCH-EC-2015-008513

PATIENT
  Age: 54 Year
  Sex: Female
  Weight: 63 kg

DRUGS (9)
  1. URBASON [Concomitant]
     Active Substance: METHYLPREDNISOLONE
  2. LOBIVON [Concomitant]
     Active Substance: NEBIVOLOL HYDROCHLORIDE
  3. NEXIUM [Concomitant]
     Active Substance: ESOMEPRAZOLE MAGNESIUM
  4. ERIBULIN [Suspect]
     Active Substance: ERIBULIN
     Indication: HER-2 POSITIVE BREAST CANCER
     Route: 041
     Dates: start: 20150619, end: 20150619
  5. AVASTIN [Suspect]
     Active Substance: BEVACIZUMAB
     Indication: HER-2 POSITIVE BREAST CANCER
     Route: 041
     Dates: start: 20150619, end: 20150619
  6. LASIX [Concomitant]
     Active Substance: FUROSEMIDE
  7. IPERTEN [Concomitant]
     Active Substance: MANIDIPINE
  8. ZYLORIC [Concomitant]
     Active Substance: ALLOPURINOL
  9. DIFLUCAN [Concomitant]
     Active Substance: FLUCONAZOLE

REACTIONS (2)
  - Pancytopenia [Recovered/Resolved]
  - Mucosal inflammation [Recovering/Resolving]

NARRATIVE: CASE EVENT DATE: 20150626
